FAERS Safety Report 4628134-7 (Version None)
Quarter: 2005Q2

REPORT INFORMATION
  Report Type: 
  Country: None (occurrence: None)
  Receive Date: 20050406
  Receipt Date: 20050402
  Transmission Date: 20051028
  Serious: Yes (Hospitalization)
  Sender: FDA-Public Use
  Company Number: 2005005884

PATIENT
  Age: 43 Year
  Sex: Female
  Weight: 80 kg

DRUGS (7)
  1. QUILONUM RETARD [Suspect]
     Dosage: 9000MG SINGLE DOSE
     Route: 048
  2. ZYPREXA [Suspect]
     Dosage: 75MG SINGLE DOSE
     Route: 048
  3. DOXEPIN HCL [Suspect]
     Dosage: 2000MG SINGLE DOSE
     Route: 048
  4. IBUPROFEN [Suspect]
     Dosage: 6000MG SINGLE DOSE
     Route: 048
  5. LORAZEPAM [Suspect]
     Dosage: 10TAB SINGLE DOSE
     Route: 048
  6. PIPAMPERON [Suspect]
     Dosage: 400MG SINGLE DOSE
     Route: 048
  7. ALCOHOL [Suspect]
     Route: 048

REACTIONS (4)
  - INTENTIONAL MISUSE [None]
  - MYDRIASIS [None]
  - SOMNOLENCE [None]
  - SUICIDE ATTEMPT [None]
